FAERS Safety Report 9460362 (Version 2)
Quarter: 2013Q3

REPORT INFORMATION
  Report Type: Spontaneous
  Country: DE (occurrence: IT)
  Receive Date: 20130815
  Receipt Date: 20130830
  Transmission Date: 20140515
  Serious: Yes (Hospitalization)
  Sender: FDA-Public Use
  Company Number: IT-FRI-1000047861

PATIENT
  Age: 80 Year
  Sex: Female

DRUGS (5)
  1. MEMANTINE [Suspect]
     Indication: DEMENTIA ALZHEIMER^S TYPE
     Dosage: 20 MG
     Route: 048
     Dates: start: 20130101, end: 20130525
  2. MEMANTINE [Suspect]
     Dosage: 10 MG
     Route: 048
     Dates: start: 20130526
  3. ZYPREXA [Suspect]
     Indication: DEMENTIA ALZHEIMER^S TYPE
     Dosage: 2.5 MG
     Route: 048
     Dates: start: 20130101, end: 20130525
  4. CYMBALTA [Suspect]
     Indication: DEMENTIA ALZHEIMER^S TYPE
     Dosage: 30 MG
     Route: 048
     Dates: start: 20130101, end: 20130527
  5. EXELON [Suspect]
     Indication: DEMENTIA ALZHEIMER^S TYPE
     Dosage: 9.5 MG
     Route: 062
     Dates: start: 20130101, end: 20130527

REACTIONS (2)
  - Sopor [Recovered/Resolved]
  - Asthenia [Recovered/Resolved]
